FAERS Safety Report 22184781 (Version 1)
Quarter: 2023Q2

REPORT INFORMATION
  Report Type: Spontaneous
  Country: US (occurrence: US)
  Receive Date: 20230407
  Receipt Date: 20230407
  Transmission Date: 20230721
  Serious: No
  Sender: FDA-Public Use
  Company Number: US-Melinta Therapeutics, LLC-US-MLNT-23-00230

PATIENT

DRUGS (1)
  1. KIMYRSA [Suspect]
     Active Substance: ORITAVANCIN DIPHOSPHATE
     Indication: Product used for unknown indication
     Dosage: NOT PROVIDED
     Route: 041
     Dates: start: 2023, end: 2023

REACTIONS (3)
  - Tachycardia [Unknown]
  - Chills [Unknown]
  - Flushing [Unknown]

NARRATIVE: CASE EVENT DATE: 20230101
